FAERS Safety Report 10411078 (Version 1)
Quarter: 2014Q1

REPORT INFORMATION
  Report Type: Spontaneous
  Country: US (occurrence: None)
  Receive Date: 20140318
  Receipt Date: 20140318
  Transmission Date: 20141002
  Serious: Yes (Other)
  Sender: FDA-Public Use
  Company Number: US-JNJFOC-20130217419

PATIENT
  Age: 30 Year
  Sex: Male
  Weight: 78.02 kg

DRUGS (1)
  1. ROGAINE FOR MEN EXTRA STRENGTH FOAM UNSCENTED [Suspect]
     Route: 061
     Dates: start: 20130205, end: 20130225

REACTIONS (1)
  - Weight increased [None]
